FAERS Safety Report 13163089 (Version 5)
Quarter: 2017Q2

REPORT INFORMATION
  Report Type: Report from Study
  Country: DE (occurrence: DE)
  Receive Date: 20170130
  Receipt Date: 20170505
  Transmission Date: 20170830
  Serious: Yes (Hospitalization)
  Sender: FDA-Public Use
  Company Number: DE-B.I. PHARMACEUTICALS,INC./RIDGEFIELD-2016-BI-43987BI

PATIENT
  Age: 76 Year
  Sex: Male
  Weight: 91 kg

DRUGS (24)
  1. DABIGATRAN [Suspect]
     Active Substance: DABIGATRAN
     Indication: PERCUTANEOUS CORONARY INTERVENTION
     Route: 048
     Dates: start: 20160629, end: 20161026
  2. CLOPIDOGREL [Suspect]
     Active Substance: CLOPIDOGREL BISULFATE
     Indication: PERCUTANEOUS CORONARY INTERVENTION
     Route: 048
     Dates: start: 20150919
  3. DELIX [Concomitant]
     Active Substance: RAMIPRIL
     Indication: CARDIAC FAILURE
  4. MOLSIDOMIN [Concomitant]
     Indication: ANGINA PECTORIS
     Route: 048
     Dates: start: 201701
  5. SIMVASTATIN. [Concomitant]
     Active Substance: SIMVASTATIN
     Indication: HYPERCHOLESTEROLAEMIA
     Route: 048
     Dates: start: 2008
  6. PANTOPRAZOL [Concomitant]
     Active Substance: PANTOPRAZOLE SODIUM
     Indication: GASTRITIS PROPHYLAXIS
     Route: 048
     Dates: start: 2013
  7. QUERTO [Concomitant]
     Indication: CARDIAC FAILURE
     Route: 048
     Dates: start: 2008, end: 20160704
  8. SOTALOL. [Concomitant]
     Active Substance: SOTALOL
     Indication: VENTRICULAR TACHYCARDIA
     Route: 048
     Dates: start: 20160704
  9. DABIGATRAN [Suspect]
     Active Substance: DABIGATRAN
     Indication: ATRIAL FIBRILLATION
  10. CLOPIDOGREL [Suspect]
     Active Substance: CLOPIDOGREL BISULFATE
     Indication: ATRIAL FIBRILLATION
  11. RANEXA [Concomitant]
     Active Substance: RANOLAZINE
     Indication: CORONARY ARTERY DISEASE
     Route: 048
     Dates: start: 20161026
  12. ISDN REF [Concomitant]
     Indication: CORONARY ARTERY DISEASE
     Route: 048
     Dates: start: 201701
  13. DELIX [Concomitant]
     Active Substance: RAMIPRIL
     Indication: CORONARY ARTERY DISEASE
     Route: 048
     Dates: start: 2008
  14. TOREN [Concomitant]
     Indication: CARDIAC FAILURE
     Route: 048
     Dates: start: 2013
  15. TOREN [Concomitant]
     Indication: CORONARY ARTERY DISEASE
  16. ASPIRIN. [Concomitant]
     Active Substance: ASPIRIN
     Indication: ATRIAL FIBRILLATION
     Route: 048
     Dates: start: 20161027
  17. RANEXA [Concomitant]
     Active Substance: RANOLAZINE
     Route: 048
     Dates: start: 201701
  18. ALDACTONE [Concomitant]
     Active Substance: SPIRONOLACTONE
     Indication: CARDIAC FAILURE
     Route: 048
     Dates: start: 2013
  19. CARVETA [Concomitant]
     Indication: ANGINA PECTORIS
     Route: 048
     Dates: start: 2013, end: 20160704
  20. SIMVASTATIN. [Concomitant]
     Active Substance: SIMVASTATIN
     Indication: HYPERLIPIDAEMIA
  21. VIALINOR [Concomitant]
     Indication: PROPHYLAXIS
     Route: 048
     Dates: start: 201701
  22. RANEXA [Concomitant]
     Active Substance: RANOLAZINE
     Indication: ANGINA PECTORIS
     Route: 048
     Dates: start: 20130529
  23. MELPERON [Concomitant]
     Active Substance: MELPERONE
     Indication: PROPHYLAXIS
     Route: 048
     Dates: start: 201701
  24. ALDACTONE [Concomitant]
     Active Substance: SPIRONOLACTONE
     Indication: CORONARY ARTERY DISEASE

REACTIONS (3)
  - Ventricular fibrillation [Recovered/Resolved]
  - Coronary artery disease [Recovered/Resolved]
  - Angina unstable [Recovered/Resolved]

NARRATIVE: CASE EVENT DATE: 20160703
